FAERS Safety Report 6962250-X (Version None)
Quarter: 2010Q3

REPORT INFORMATION
  Report Type: 
  Country: None (occurrence: None)
  Receive Date: 20100901
  Receipt Date: 20100901
  Transmission Date: 20110219
  Serious: Yes (Hospitalization)
  Sender: FDA-Public Use
  Company Number: None

PATIENT
  Sex: Male

DRUGS (1)
  1. OMNIPAQUE 350 [Suspect]
     Indication: ABDOMEN SCAN

REACTIONS (4)
  - CONTRAST MEDIA REACTION [None]
  - DYSPNOEA [None]
  - RENAL COLIC [None]
  - SYNCOPE [None]
